FAERS Safety Report 14373987 (Version 1)
Quarter: 2018Q1

REPORT INFORMATION
  Report Type: Spontaneous
  Country: US (occurrence: US)
  Receive Date: 20180111
  Receipt Date: 20180111
  Transmission Date: 20180509
  Serious: Yes (Death, Hospitalization, Other)
  Sender: FDA-Public Use
  Company Number: US-STRIDES ARCOLAB LIMITED-2018SP000122

PATIENT

DRUGS (1)
  1. MYCOPHENOLATE MOFETIL. [Suspect]
     Active Substance: MYCOPHENOLATE MOFETIL
     Indication: RENAL TRANSPLANT
     Dosage: UNK
     Route: 065

REACTIONS (31)
  - Cardiac tamponade [Fatal]
  - Lethargy [Unknown]
  - Azotaemia [Unknown]
  - Urinary tract infection [Unknown]
  - Mental status changes [Unknown]
  - Hypoxia [Unknown]
  - Pericardial effusion [Recovered/Resolved]
  - Pericarditis fungal [Fatal]
  - Transplant rejection [Not Recovered/Not Resolved]
  - Hypotension [Unknown]
  - Asterixis [Unknown]
  - Heart alternation [Unknown]
  - Cardiac arrest [Unknown]
  - Enterococcal infection [Unknown]
  - Generalised oedema [Unknown]
  - Fluid overload [Unknown]
  - Electrocardiogram ST segment elevation [Unknown]
  - Condition aggravated [Unknown]
  - Metabolic encephalopathy [Unknown]
  - Shock [Unknown]
  - Aspergillus infection [Fatal]
  - Renal tubular necrosis [Unknown]
  - Septic shock [Unknown]
  - Unresponsive to stimuli [Unknown]
  - Gastrointestinal haemorrhage [Unknown]
  - Bacteraemia [Unknown]
  - Pyrexia [Unknown]
  - Septic embolus [Unknown]
  - Infarction [Unknown]
  - Tachycardia [Unknown]
  - Endocarditis [Unknown]
